FAERS Safety Report 13436907 (Version 1)
Quarter: 2017Q2

REPORT INFORMATION
  Report Type: Spontaneous
  Country: US (occurrence: US)
  Receive Date: 20170413
  Receipt Date: 20170413
  Transmission Date: 20170830
  Serious: No
  Sender: FDA-Public Use
  Company Number: US-SA-2016SA204981

PATIENT
  Age: 53 Year
  Sex: Male
  Weight: 88.45 kg

DRUGS (1)
  1. ALLEGRA-D [Suspect]
     Active Substance: FEXOFENADINE\PSEUDOEPHEDRINE
     Indication: COUGH
     Route: 065

REACTIONS (3)
  - Pollakiuria [Recovered/Resolved]
  - Urine flow decreased [Recovered/Resolved]
  - Prostatomegaly [Recovered/Resolved]
